FAERS Safety Report 8549642-2 (Version None)
Quarter: 2012Q3

REPORT INFORMATION
  Report Type: 
  Country: None (occurrence: None)
  Receive Date: 20120730
  Receipt Date: 20120718
  Transmission Date: 20120928
  Serious: Yes (Other)
  Sender: FDA-Public Use
  Company Number: DE-CELGENEUS-062-C5013-11122614

PATIENT
  Age: 73 Year
  Sex: Male
  Weight: 79.5 kg

DRUGS (12)
  1. ACYCLOVIR [Concomitant]
     Indication: HERPES SIMPLEX
     Route: 065
     Dates: start: 20110524
  2. ACYCLOVIR [Concomitant]
     Route: 065
     Dates: start: 20110524
  3. BISOPROLOL FUMARATE [Concomitant]
     Dosage: 2.5 MILLIGRAM
     Route: 065
     Dates: start: 20101021
  4. NEBIVOLOL HCL [Concomitant]
     Indication: HYPERTONIA
     Dosage: 2.5 MILLIGRAM
     Route: 065
     Dates: start: 20080101
  5. DOXAZOSIN MESYLATE [Concomitant]
     Indication: HYPERTONIA
     Dosage: 2 MILLIGRAM
     Route: 065
     Dates: start: 20080101
  6. DEXAMETHASONE [Suspect]
     Indication: MULTIPLE MYELOMA
     Dosage: 40 MILLIGRAM
     Route: 065
     Dates: start: 20090127
  7. BUPRENORPHINE [Concomitant]
     Indication: PAIN
     Route: 065
     Dates: start: 20081101
  8. ZOMETA [Concomitant]
     Indication: OSTEOLYSIS
     Route: 065
     Dates: start: 20090303
  9. ASPIRIN [Concomitant]
     Indication: THROMBOSIS PROPHYLAXIS
     Dosage: 100 MILLIGRAM
     Route: 065
     Dates: start: 20090127
  10. LENALIDOMIDE [Suspect]
     Indication: MULTIPLE MYELOMA
     Dosage: 25 MILLIGRAM
     Route: 048
     Dates: start: 20090127
  11. LENALIDOMIDE [Suspect]
     Dosage: 25 MILLIGRAM
     Route: 048
     Dates: start: 20111206
  12. PANTOPRAZOLE [Concomitant]
     Indication: PROPHYLAXIS
     Dosage: 40 MILLIGRAM
     Route: 065
     Dates: start: 20080101, end: 20120104

REACTIONS (1)
  - SQUAMOUS CELL CARCINOMA OF SKIN [None]
